FAERS Safety Report 5029266-4 (Version None)
Quarter: 2006Q2

REPORT INFORMATION
  Report Type: 
  Country: None (occurrence: None)
  Receive Date: 20060616
  Receipt Date: 20060616
  Transmission Date: 20061013
  Serious: No
  Sender: FDA-Public Use
  Company Number: None

PATIENT
  Age: 58 Year
  Sex: Female
  Weight: 58.9676 kg

DRUGS (2)
  1. METHYLPREDNISOLONE 4MG TAB [Suspect]
     Indication: ARTHROPOD BITE
     Dosage: 4 MG DECREASING AMOUNTS PO
     Route: 048
     Dates: start: 20060607, end: 20060613
  2. METHYLPREDNISOLONE 4MG TAB [Suspect]
     Indication: HYPERSENSITIVITY
     Dosage: 4 MG DECREASING AMOUNTS PO
     Route: 048
     Dates: start: 20060607, end: 20060613

REACTIONS (2)
  - DRUG INEFFECTIVE [None]
  - PHARMACEUTICAL PRODUCT COMPLAINT [None]
